FAERS Safety Report 8861473 (Version 1)
Quarter: 2012Q4

REPORT INFORMATION
  Report Type: 
  Country: US (occurrence: US)
  Receive Date: 20121025
  Receipt Date: 20121025
  Transmission Date: 20130627
  Serious: No
  Sender: FDA-Public Use
  Company Number: US-AMGEN-USASP2012014160

PATIENT
  Age: 40 Year
  Sex: Female

DRUGS (10)
  1. ENBREL [Suspect]
     Indication: PRODUCT USED FOR UNKNOWN INDICATION
     Dosage: 50 mg, qwk
     Route: 058
  2. METHOTREXATE [Concomitant]
     Dosage: 2.5 mg, UNK
  3. FOLIC ACID [Concomitant]
     Dosage: 20 mg, UNK
  4. MELOXICAM [Concomitant]
     Dosage: 7.5 mg, UNK
  5. LISINOPRIL [Concomitant]
     Dosage: 5 mg, UNK
  6. OMEGA 3 6 9 [Concomitant]
  7. CLONAZEPAM [Concomitant]
  8. CYCLOBENZAPRINE [Concomitant]
  9. HYDROCODONE W/APAP                 /00607101/ [Concomitant]
  10. PATADAY [Concomitant]
     Dosage: 0.2 %, UNK

REACTIONS (2)
  - Oropharyngeal pain [Recovered/Resolved]
  - Lymphadenopathy [Recovered/Resolved]
